FAERS Safety Report 4355615-6 (Version None)
Quarter: 2004Q2

REPORT INFORMATION
  Report Type: 
  Country: None (occurrence: None)
  Receive Date: 20040505
  Receipt Date: 20040414
  Transmission Date: 20050107
  Serious: Yes (Hospitalization)
  Sender: FDA-Public Use
  Company Number: S04-FRA-01861-01

PATIENT
  Age: 84 Year
  Sex: Female

DRUGS (9)
  1. EBIXA (MEMANTINE) [Suspect]
     Indication: DEMENTIA ALZHEIMER'S TYPE
     Dosage: 15 MG QD PO
     Route: 048
     Dates: start: 20040315, end: 20040320
  2. EBIXA (MEMANTINE) [Suspect]
     Indication: DEMENTIA ALZHEIMER'S TYPE
     Dosage: 10 MG QD PO
     Route: 048
     Dates: start: 20040321
  3. EBIXA (MEMANTINE) [Suspect]
     Indication: DEMENTIA ALZHEIMER'S TYPE
     Dosage: 10 MG QD PO
     Route: 048
     Dates: start: 20040308, end: 20040314
  4. EBIXA (MEMANTINE) [Suspect]
     Indication: DEMENTIA ALZHEIMER'S TYPE
     Dosage: 5 MG QD PO
     Route: 048
     Dates: start: 20040301, end: 20040307
  5. NITRIDERM (GLYCERYL TRINITRATE) (GLYCERYL TRINITRATE) [Concomitant]
  6. OSTRAM (CALCIUM PHOSPHATE) [Concomitant]
  7. LEVOTHYROXINE SODIUM [Concomitant]
  8. ARICEPT [Concomitant]
  9. EFFEXOR [Concomitant]

REACTIONS (2)
  - DIZZINESS [None]
  - MALAISE [None]
